FAERS Safety Report 19451248 (Version 1)
Quarter: 2021Q2

REPORT INFORMATION
  Report Type: Spontaneous
  Country: US (occurrence: US)
  Receive Date: 20210623
  Receipt Date: 20210623
  Transmission Date: 20210717
  Serious: No
  Sender: FDA-Public Use
  Company Number: None

PATIENT
  Age: 40 Year
  Sex: Female
  Weight: 164.7 kg

DRUGS (7)
  1. IRON [Concomitant]
     Active Substance: IRON
  2. FUROSEMIDE. [Concomitant]
     Active Substance: FUROSEMIDE
  3. VITAMIN D3 [Concomitant]
     Active Substance: CHOLECALCIFEROL
  4. SPIRONOLACTONE. [Concomitant]
     Active Substance: SPIRONOLACTONE
  5. VITAMIN B12 [Concomitant]
     Active Substance: CYANOCOBALAMIN
  6. OZEMPIC [Suspect]
     Active Substance: SEMAGLUTIDE
     Indication: TYPE 2 DIABETES MELLITUS
  7. CARVEDILOL. [Concomitant]
     Active Substance: CARVEDILOL

REACTIONS (5)
  - Heart rate increased [None]
  - Chest discomfort [None]
  - Back pain [None]
  - Drug interaction [None]
  - Headache [None]

NARRATIVE: CASE EVENT DATE: 20210601
